FAERS Safety Report 16585604 (Version 1)
Quarter: 2019Q3

REPORT INFORMATION
  Report Type: Spontaneous
  Country: US (occurrence: US)
  Receive Date: 20190717
  Receipt Date: 20190717
  Transmission Date: 20191004
  Serious: No
  Sender: FDA-Public Use
  Company Number: US-GLAXOSMITHKLINE-US2019128459

PATIENT
  Age: 53 Year
  Sex: Female

DRUGS (2)
  1. NICODERM CQ [Suspect]
     Active Substance: NICOTINE
     Indication: SMOKING CESSATION THERAPY
     Dosage: 21 MG, QD
     Route: 062
     Dates: start: 20190709, end: 20190714
  2. NICODERM CQ [Suspect]
     Active Substance: NICOTINE
     Dosage: 21 MG, QD
     Dates: start: 20190709, end: 20190714

REACTIONS (3)
  - Application site urticaria [Recovering/Resolving]
  - Application site erythema [Recovering/Resolving]
  - Application site bruise [Recovering/Resolving]

NARRATIVE: CASE EVENT DATE: 20190709
